FAERS Safety Report 15029584 (Version 1)
Quarter: 2018Q2

REPORT INFORMATION
  Report Type: Spontaneous
  Country: IE (occurrence: IE)
  Receive Date: 20180619
  Receipt Date: 20180619
  Transmission Date: 20180711
  Serious: Yes (Other)
  Sender: FDA-Public Use
  Company Number: IE-JNJFOC-20180608505

PATIENT
  Age: 53 Year
  Sex: Male

DRUGS (4)
  1. DARATUMUMAB [Suspect]
     Active Substance: DARATUMUMAB
     Indication: WALDENSTROM^S MACROGLOBULINAEMIA
     Route: 065
     Dates: start: 201803
  2. CARFILZOMIB [Suspect]
     Active Substance: CARFILZOMIB
     Indication: WALDENSTROM^S MACROGLOBULINAEMIA
  3. DEXAMETHASONE. [Suspect]
     Active Substance: DEXAMETHASONE
     Indication: WALDENSTROM^S MACROGLOBULINAEMIA
  4. POMALIDOMIDE [Suspect]
     Active Substance: POMALIDOMIDE
     Indication: WALDENSTROM^S MACROGLOBULINAEMIA

REACTIONS (6)
  - Blood immunoglobulin M increased [Not Recovered/Not Resolved]
  - Off label use [Unknown]
  - Monoclonal immunoglobulin present [Unknown]
  - Product use issue [Unknown]
  - Bone pain [Not Recovered/Not Resolved]
  - Product use in unapproved indication [Unknown]

NARRATIVE: CASE EVENT DATE: 201803
